FAERS Safety Report 22285986 (Version 1)
Quarter: 2023Q2

REPORT INFORMATION
  Report Type: Report from Study
  Country: US (occurrence: US)
  Receive Date: 20230505
  Receipt Date: 20230505
  Transmission Date: 20230722
  Serious: Yes (Other)
  Sender: FDA-Public Use
  Company Number: US-ABBVIE-4751450

PATIENT
  Age: 71 Year
  Sex: Male

DRUGS (1)
  1. SKYRIZI [Suspect]
     Active Substance: RISANKIZUMAB-RZAA
     Indication: Psoriasis
     Dosage: STRNGTH 150 MG
     Route: 058

REACTIONS (3)
  - Mediastinal mass [Recovering/Resolving]
  - Neoplasm [Recovering/Resolving]
  - Sternectomy [Recovering/Resolving]

NARRATIVE: CASE EVENT DATE: 20230301
